FAERS Safety Report 12221635 (Version 4)
Quarter: 2018Q1

REPORT INFORMATION
  Report Type: Report from Study
  Country: US (occurrence: US)
  Receive Date: 20160330
  Receipt Date: 20180215
  Transmission Date: 20180508
  Serious: Yes (Other)
  Sender: FDA-Public Use
  Company Number: US-TEVA-647707ACC

PATIENT

DRUGS (3)
  1. BENDAMUSTINE HYDROCHLORIDE. [Suspect]
     Active Substance: BENDAMUSTINE HYDROCHLORIDE
     Indication: NON-HODGKIN^S LYMPHOMA
     Dosage: 90 MG/M2 ON DAYS 1 AND 2, EVERY 28 DAYS
     Route: 042
  2. BORTEZOMIB [Concomitant]
     Active Substance: BORTEZOMIB
     Indication: NON-HODGKIN^S LYMPHOMA
     Dosage: 1.6 MG/M2 ON DAYS 1, 8, AND 15 EVERY CYCLE
     Route: 042
  3. RITUXIMAB. [Concomitant]
     Active Substance: RITUXIMAB
     Indication: NON-HODGKIN^S LYMPHOMA
     Dosage: CYCLE 1: 375 MG/M2 DAYS 1, 8 AND 15; CYCLES 2-6: 375 MG/M2 DAY 1 EVERY 28-DAY CYCLE
     Route: 042

REACTIONS (2)
  - Prescribed underdose [Unknown]
  - Pancreatitis [Unknown]
